FAERS Safety Report 24205861 (Version 1)
Quarter: 2024Q3

REPORT INFORMATION
  Report Type: Spontaneous
  Country: US (occurrence: None)
  Receive Date: 20240812
  Receipt Date: 20240812
  Transmission Date: 20241017
  Serious: Yes (Other)
  Sender: Public
  Company Number: None

PATIENT
  Age: 29 Year
  Sex: Male
  Weight: 69.75 kg

DRUGS (6)
  1. CANNABIDIOL [Suspect]
     Active Substance: CANNABIDIOL
     Indication: Anxiety
     Dates: start: 20240506, end: 20240531
  2. HERBAL NOS [Suspect]
     Active Substance: HERBALS
  3. HERBAL NOS [Suspect]
     Active Substance: HERBALS
  4. VITAMIN D3 [Concomitant]
     Active Substance: CHOLECALCIFEROL
  5. MAGNESIUM L-THREONATE [Concomitant]
  6. DIETARY SUPPLEMENT [Concomitant]
     Active Substance: DIETARY SUPPLEMENT

REACTIONS (5)
  - Physical product label issue [None]
  - Anxiety [None]
  - Serotonin syndrome [None]
  - Product use in unapproved indication [None]
  - Substance use [None]

NARRATIVE: CASE EVENT DATE: 20240801
